FAERS Safety Report 4846218-5 (Version None)
Quarter: 2005Q4

REPORT INFORMATION
  Report Type: 
  Country: None (occurrence: None)
  Receive Date: 20051130
  Receipt Date: 20051027
  Transmission Date: 20060501
  Serious: Yes (Hospitalization)
  Sender: FDA-Public Use
  Company Number: ENTC2005-0270

PATIENT
  Age: 74 Year
  Sex: Male

DRUGS (11)
  1. STALEVO 100 [Suspect]
     Indication: PARKINSONISM
     Dosage: ORAL
     Route: 048
     Dates: end: 20050531
  2. ALVEDON [Concomitant]
  3. MOVICOL [Concomitant]
  4. SEROQUEL [Concomitant]
  5. ORSTANORM [Concomitant]
  6. MADOPARK QUICK MITE [Concomitant]
  7. MADOPARK DEPOT [Concomitant]
  8. MADOPARK QUICK [Concomitant]
  9. COMTESS (ENTACAPONE) [Concomitant]
  10. TRIOBE [Concomitant]
  11. LOSEC MUPS [Concomitant]

REACTIONS (3)
  - ANAEMIA [None]
  - PNEUMONIA [None]
  - RENAL FAILURE [None]
